FAERS Safety Report 7824831-0 (Version None)
Quarter: 2011Q4

REPORT INFORMATION
  Report Type: 
  Country: None (occurrence: None)
  Receive Date: 20111019
  Receipt Date: 20110208
  Transmission Date: 20120403
  Serious: No
  Sender: FDA-Public Use
  Company Number: US-BRISTOL-MYERS SQUIBB COMPANY-15537285

PATIENT
  Age: 59 Year
  Sex: Female

DRUGS (1)
  1. AVALIDE [Suspect]
     Dosage: TAKING FROM LAST 10YEARS
     Dates: end: 20110101

REACTIONS (2)
  - DIZZINESS [None]
  - NAUSEA [None]
